FAERS Safety Report 8455190-0 (Version None)
Quarter: 2012Q2

REPORT INFORMATION
  Report Type: 
  Country: None (occurrence: None)
  Receive Date: 20120621
  Receipt Date: 20120613
  Transmission Date: 20120825
  Serious: Yes (Other)
  Sender: FDA-Public Use
  Company Number: SE-BAXTER-2012BAX003686

PATIENT
  Sex: Male
  Weight: 109 kg

DRUGS (3)
  1. KIOVIG [Suspect]
     Indication: BURKITT'S LYMPHOMA
     Route: 042
     Dates: start: 20111121
  2. KIOVIG [Suspect]
     Indication: SECONDARY IMMUNODEFICIENCY
     Route: 042
     Dates: start: 20120305
  3. KIOVIG [Suspect]
     Route: 042
     Dates: start: 20120419

REACTIONS (2)
  - CHILLS [None]
  - FLANK PAIN [None]
